FAERS Safety Report 6395631-6 (Version None)
Quarter: 2009Q4

REPORT INFORMATION
  Report Type: 
  Country: None (occurrence: None)
  Receive Date: 20091009
  Receipt Date: 20090930
  Transmission Date: 20100525
  Serious: Yes (Other)
  Sender: FDA-Public Use
  Company Number: US-JNJCH-2009026108

PATIENT
  Age: 49 Year
  Sex: Male
  Weight: 74.8 kg

DRUGS (1)
  1. ASPIRIN [Suspect]
     Indication: DRUG USE FOR UNKNOWN INDICATION
     Dosage: TEXT:UNSPECIFIED
     Route: 048

REACTIONS (5)
  - EYE SWELLING [None]
  - LIP SWELLING [None]
  - OCULAR HYPERAEMIA [None]
  - URTICARIA [None]
  - WHEEZING [None]
